FAERS Safety Report 8134578-1 (Version None)
Quarter: 2012Q1

REPORT INFORMATION
  Report Type: 
  Country: None (occurrence: None)
  Receive Date: 20120214
  Receipt Date: 20120203
  Transmission Date: 20120608
  Serious: Yes (Other)
  Sender: FDA-Public Use
  Company Number: GB-AMGEN-GBRSP2012008384

PATIENT
  Age: 68 Year
  Sex: Female

DRUGS (2)
  1. ENBREL [Suspect]
     Indication: RHEUMATOID ARTHRITIS
     Dosage: 50 MG, WEEKLY
     Dates: start: 20100701, end: 20110501
  2. METHOTREXATE SODIUM [Suspect]
     Dosage: UNK

REACTIONS (2)
  - PNEUMONIA [None]
  - GASTROINTESTINAL CARCINOMA [None]
